FAERS Safety Report 11324006 (Version 3)
Quarter: 2016Q2

REPORT INFORMATION
  Report Type: Report from Study
  Country: CO (occurrence: CO)
  Receive Date: 20150730
  Receipt Date: 20160623
  Transmission Date: 20160815
  Serious: Yes (Hospitalization, Other)
  Sender: FDA-Public Use
  Company Number: PHHY2015CO091223

PATIENT
  Age: 53 Year
  Sex: Male
  Weight: 72 kg

DRUGS (1)
  1. TASIGNA [Suspect]
     Active Substance: NILOTINIB
     Indication: CHRONIC MYELOID LEUKAEMIA
     Dosage: 400 MG, Q12H
     Route: 048
     Dates: start: 20130110

REACTIONS (6)
  - Visual impairment [Unknown]
  - Corneal reflex decreased [Unknown]
  - Pulmonary mycosis [Unknown]
  - Facial paralysis [Unknown]
  - Feeling abnormal [Unknown]
  - Speech disorder [Recovering/Resolving]

NARRATIVE: CASE EVENT DATE: 20160229
